FAERS Safety Report 8602177-0 (Version None)
Quarter: 2012Q3

REPORT INFORMATION
  Report Type: 
  Country: None (occurrence: None)
  Receive Date: 20120817
  Receipt Date: 20120808
  Transmission Date: 20120928
  Serious: Yes (Death, Hospitalization)
  Sender: FDA-Public Use
  Company Number: US-JNJFOC-20111205188

PATIENT
  Sex: Male
  Weight: 109.32 kg

DRUGS (12)
  1. IMURAN [Suspect]
     Route: 048
     Dates: start: 20040311, end: 20040729
  2. IMODIUM A-D [Concomitant]
     Route: 048
  3. IMODIUM A-D [Concomitant]
     Route: 048
  4. IMURAN [Suspect]
     Indication: CROHN'S DISEASE
     Route: 048
     Dates: start: 20040729, end: 20110525
  5. PREDNISONE TAB [Concomitant]
     Dates: start: 20110901, end: 20111201
  6. SULFAMETHOXAZOLE AND TRIMETHOPRIM [Concomitant]
  7. REMICADE [Suspect]
     Indication: CROHN'S DISEASE
     Route: 042
     Dates: start: 20061122
  8. FOLIC ACID [Concomitant]
  9. REMICADE [Suspect]
     Route: 042
  10. REMICADE [Suspect]
     Route: 042
     Dates: end: 20110909
  11. NPLATE [Concomitant]
  12. MULTI-VITAMINS [Concomitant]

REACTIONS (2)
  - HEPATOSPLENIC T-CELL LYMPHOMA [None]
  - PNEUMONIA [None]
